FAERS Safety Report 9260846 (Version 3)
Quarter: 2013Q2

REPORT INFORMATION
  Report Type: Spontaneous
  Country: US (occurrence: US)
  Receive Date: 20130429
  Receipt Date: 20130613
  Transmission Date: 20140414
  Serious: Yes (Other)
  Sender: FDA-Public Use
  Company Number: US-PFIZER INC-2013130857

PATIENT
  Age: 51 Year
  Sex: Female
  Weight: 40.82 kg

DRUGS (6)
  1. LYRICA [Suspect]
     Indication: NERVE INJURY
     Dosage: 75 MG, 2X/DAY
     Route: 048
     Dates: start: 201303, end: 201304
  2. LYRICA [Suspect]
     Indication: NEURALGIA
  3. HYDROCODONE [Suspect]
     Indication: MOVEMENT DISORDER
     Dosage: 7.5 MG, DAILY
     Dates: start: 2007
  4. HYDROCODONE [Suspect]
     Indication: FALL
  5. VICODIN [Suspect]
     Indication: MOVEMENT DISORDER
     Dosage: ^5.5MG^ AS FOUR TO FIVE TABLET AS NEEDED
     Dates: start: 2007
  6. VICODIN [Suspect]
     Indication: FALL

REACTIONS (3)
  - Abasia [Unknown]
  - Visual acuity reduced [Unknown]
  - Drug ineffective [Unknown]
